FAERS Safety Report 11639862 (Version 1)
Quarter: 2015Q4

REPORT INFORMATION
  Report Type: Spontaneous
  Country: US (occurrence: US)
  Receive Date: 20151019
  Receipt Date: 20151019
  Transmission Date: 20160304
  Serious: Yes (Other)
  Sender: FDA-Public Use
  Company Number: US-SUN PHARMACEUTICAL INDUSTRIES LTD-2015US-104615

PATIENT
  Sex: Female

DRUGS (6)
  1. DOXYCYCLINE. [Suspect]
     Active Substance: DOXYCYCLINE
     Indication: PNEUMONIA
     Dosage: UNK
     Route: 065
  2. PREDNISONE. [Suspect]
     Active Substance: PREDNISONE
     Indication: RHODOCOCCUS INFECTION
  3. DOXYCYCLINE. [Suspect]
     Active Substance: DOXYCYCLINE
     Indication: RHODOCOCCUS INFECTION
  4. MINOCYCLINE\MINOCYCLINE HYDROCHLORIDE [Suspect]
     Active Substance: MINOCYCLINE\MINOCYCLINE HYDROCHLORIDE
     Indication: RHODOCOCCUS INFECTION
  5. PREDNISONE. [Suspect]
     Active Substance: PREDNISONE
     Indication: PNEUMONIA
     Route: 065
  6. MINOCYCLINE\MINOCYCLINE HYDROCHLORIDE [Suspect]
     Active Substance: MINOCYCLINE\MINOCYCLINE HYDROCHLORIDE
     Indication: PNEUMONIA
     Dosage: UNK
     Route: 065

REACTIONS (1)
  - Condition aggravated [Recovered/Resolved]
